FAERS Safety Report 8821739 (Version 3)
Quarter: 2012Q4

REPORT INFORMATION
  Report Type: 
  Country: US (occurrence: US)
  Receive Date: 20121002
  Receipt Date: 20121025
  Transmission Date: 20130627
  Serious: Yes (Hospitalization, Disabling, Other)
  Sender: FDA-Public Use
  Company Number: US-009507513-2012SP034981

PATIENT

DRUGS (4)
  1. NUVARING [Suspect]
     Indication: CONTRACEPTION
     Dosage: 0.12/0.015 mg
     Dates: start: 20090718, end: 201005
  2. NUVARING [Suspect]
     Dosage: UNK
     Dates: start: 20100910, end: 20101210
  3. TUMS [Concomitant]
     Indication: MINERAL SUPPLEMENTATION
  4. VITAMINS (UNSPECIFIED) [Concomitant]
     Indication: VITAMIN SUPPLEMENTATION

REACTIONS (15)
  - Renal failure [Recovering/Resolving]
  - Pulmonary embolism [Recovered/Resolved]
  - Pleuritic pain [Unknown]
  - Pleural effusion [Unknown]
  - Pulmonary hypertension [Recovering/Resolving]
  - Post thrombotic syndrome [Recovering/Resolving]
  - Pneumonitis [Unknown]
  - Muscle spasms [Unknown]
  - Musculoskeletal chest pain [Unknown]
  - Dyspnoea [Unknown]
  - Drug level below therapeutic [Unknown]
  - Rhinitis allergic [Unknown]
  - Upper-airway cough syndrome [Unknown]
  - Functional gastrointestinal disorder [Unknown]
  - Abdominal pain upper [Unknown]
